FAERS Safety Report 21831553 (Version 2)
Quarter: 2023Q1

REPORT INFORMATION
  Report Type: Spontaneous
  Country: HR (occurrence: HR)
  Receive Date: 20230106
  Receipt Date: 20230127
  Transmission Date: 20230418
  Serious: Yes (Other)
  Sender: FDA-Public Use
  Company Number: HR-TEVA-2022-HR-2841797

PATIENT
  Age: 60 Year
  Sex: Female

DRUGS (5)
  1. PANTOPRAZOLE [Interacting]
     Active Substance: PANTOPRAZOLE
     Indication: Duodenal ulcer
     Dosage: 20 MG
     Route: 065
  2. RIBOCICLIB [Interacting]
     Active Substance: RIBOCICLIB
     Indication: Breast cancer metastatic
     Route: 065
  3. FAMOTIDINE [Interacting]
     Active Substance: FAMOTIDINE
     Indication: Duodenal ulcer
     Dosage: 20 MG
     Route: 065
  4. FAMOTIDINE [Interacting]
     Active Substance: FAMOTIDINE
     Dosage: 40 MILLIGRAM DAILY; INCREASED THE DOSE
     Route: 065
  5. ANASTROZOLE [Concomitant]
     Active Substance: ANASTROZOLE
     Indication: Breast cancer metastatic
     Route: 065

REACTIONS (3)
  - Electrocardiogram QT prolonged [Unknown]
  - Drug interaction [Unknown]
  - Drug ineffective [Unknown]
